FAERS Safety Report 8818023 (Version 1)
Quarter: 2012Q4

REPORT INFORMATION
  Report Type: 
  Country: IT (occurrence: IT)
  Receive Date: 20121001
  Receipt Date: 20121001
  Transmission Date: 20130627
  Serious: Yes (Other)
  Sender: FDA-Public Use
  Company Number: IT-PFIZER INC-2012241671

PATIENT
  Age: 73 Year
  Sex: Male
  Weight: 70 kg

DRUGS (1)
  1. IBUPROFEN [Suspect]
     Indication: ARTHRALGIA
     Dosage: 600 mg a day
     Route: 048
     Dates: start: 20091105, end: 20110516

REACTIONS (2)
  - Gravitational oedema [Recovered/Resolved]
  - Fluid retention [Recovered/Resolved]
